FAERS Safety Report 8057224-4 (Version None)
Quarter: 2012Q1

REPORT INFORMATION
  Report Type: 
  Country: None (occurrence: None)
  Receive Date: 20120119
  Receipt Date: 20120109
  Transmission Date: 20120608
  Serious: Yes (Other)
  Sender: FDA-Public Use
  Company Number: US-PERRIGO-12US000188

PATIENT
  Age: 22 Year
  Sex: Male

DRUGS (2)
  1. PREDNISONE TAB [Concomitant]
     Indication: EOSINOPHILIC COLITIS
     Dosage: UNK, HIGH DOSES ON AND OFF
     Route: 065
  2. TESTOSTERONE CYPIONATE [Suspect]
     Indication: HYPOGONADISM
     Dosage: UNK
     Route: 030

REACTIONS (2)
  - HAEMANGIOMA [None]
  - HAEMOPTYSIS [None]
